FAERS Safety Report 15825364 (Version 1)
Quarter: 2019Q1

REPORT INFORMATION
  Report Type: Spontaneous
  Country: FR (occurrence: FR)
  Receive Date: 20190115
  Receipt Date: 20190115
  Transmission Date: 20190417
  Serious: Yes (Other)
  Sender: FDA-Public Use
  Company Number: FR-ASTRAZENECA-2018SF57907

PATIENT
  Age: 0 Year
  Sex: Female
  Weight: 1.9 kg

DRUGS (3)
  1. SYNAGIS [Suspect]
     Active Substance: PALIVIZUMAB
     Indication: PROPHYLAXIS
     Dosage: 35.0MG UNKNOWN
     Route: 030
     Dates: start: 20181210
  2. SYNAGIS [Suspect]
     Active Substance: PALIVIZUMAB
     Indication: PROPHYLAXIS
     Dosage: 30.0MG UNKNOWN
     Route: 030
     Dates: start: 20181119
  3. SYNAGIS [Suspect]
     Active Substance: PALIVIZUMAB
     Indication: PROPHYLAXIS
     Dosage: STARTED 2 WEEKS AFTER THE BIRTH, AT 34 WEEKS GESTATION
     Route: 030

REACTIONS (5)
  - Abdominal distension [Recovered/Resolved]
  - Regurgitation [Recovered/Resolved]
  - Gastrointestinal wall thickening [Unknown]
  - Vomiting [Recovered/Resolved]
  - Impaired gastric emptying [Unknown]

NARRATIVE: CASE EVENT DATE: 2018
